FAERS Safety Report 22597853 (Version 1)
Quarter: 2023Q2

REPORT INFORMATION
  Report Type: Spontaneous
  Country: AR (occurrence: AR)
  Receive Date: 20230614
  Receipt Date: 20230614
  Transmission Date: 20230721
  Serious: Yes (Other)
  Sender: FDA-Public Use
  Company Number: AR-PFIZER INC-PV202300100728

PATIENT
  Age: 51 Year
  Sex: Male

DRUGS (1)
  1. ENBREL [Suspect]
     Active Substance: ETANERCEPT
     Indication: Psoriasis
     Dosage: 50 MG, WEEKLY
     Route: 065
     Dates: start: 20090801

REACTIONS (5)
  - Nephrolithiasis [Recovered/Resolved]
  - Visual impairment [Recovered/Resolved]
  - Illness [Recovered/Resolved]
  - Pain [Recovered/Resolved]
  - Malaise [Unknown]
